FAERS Safety Report 24277367 (Version 1)
Quarter: 2024Q3

REPORT INFORMATION
  Report Type: Report from Study
  Country: US (occurrence: US)
  Receive Date: 20240903
  Receipt Date: 20240903
  Transmission Date: 20241016
  Serious: Yes (Hospitalization, Other)
  Sender: SANOFI AVENTIS
  Company Number: US-SA-2024SA255012

PATIENT
  Age: 84 Year
  Sex: Female

DRUGS (18)
  1. DUPILUMAB [Suspect]
     Active Substance: DUPILUMAB
     Indication: Asthma
     Dosage: 300 MG, QOW
     Route: 058
     Dates: start: 20220809
  2. AMLODIPINE [Concomitant]
     Active Substance: AMLODIPINE BESYLATE
  3. CETIRIZINE [Concomitant]
     Active Substance: CETIRIZINE HYDROCHLORIDE
  4. CLONIDINE [Concomitant]
     Active Substance: CLONIDINE
  5. ELIQUIS [Concomitant]
     Active Substance: APIXABAN
  6. FLONASE [Concomitant]
     Active Substance: FLUTICASONE PROPIONATE
  7. IPRATROPIUM [Concomitant]
     Active Substance: IPRATROPIUM
  8. LOSARTAN [Concomitant]
     Active Substance: LOSARTAN\LOSARTAN POTASSIUM
  9. METOPROLOL [Concomitant]
     Active Substance: METOPROLOL
  10. ASMANEX [Concomitant]
     Active Substance: MOMETASONE FUROATE
  11. MONTELUKAST [Concomitant]
     Active Substance: MONTELUKAST SODIUM
  12. OMEPRAZOLE [Concomitant]
     Active Substance: OMEPRAZOLE
  13. SIMVASTATIN [Concomitant]
     Active Substance: SIMVASTATIN
  14. TOPROL XL [Concomitant]
     Active Substance: METOPROLOL SUCCINATE
  15. TORSEMIDE [Concomitant]
     Active Substance: TORSEMIDE
  16. VALSARTAN [Concomitant]
     Active Substance: VALSARTAN
  17. WIXELA INHUB [Concomitant]
     Active Substance: FLUTICASONE PROPIONATE\SALMETEROL XINAFOATE
  18. ZOCOR [Concomitant]
     Active Substance: SIMVASTATIN

REACTIONS (1)
  - Pneumonia [Unknown]

NARRATIVE: CASE EVENT DATE: 20240801
